FAERS Safety Report 7914029-X (Version None)
Quarter: 2011Q4

REPORT INFORMATION
  Report Type: 
  Country: None (occurrence: None)
  Receive Date: 20111115
  Receipt Date: 20111109
  Transmission Date: 20120403
  Serious: Yes (Other)
  Sender: FDA-Public Use
  Company Number: NL-PFIZER INC-2011275055

PATIENT
  Sex: Female

DRUGS (3)
  1. EZETIMIBE [Suspect]
     Dosage: UNK
     Route: 048
  2. COLESEVELAM [Suspect]
     Dosage: 5 TABLETS DAILY
     Route: 048
  3. ATORVASTATIN CALCIUM [Suspect]
     Dosage: UNK
     Route: 048

REACTIONS (1)
  - ABORTION SPONTANEOUS [None]
